FAERS Safety Report 17456933 (Version 1)
Quarter: 2020Q1

REPORT INFORMATION
  Report Type: Spontaneous
  Country: US (occurrence: US)
  Receive Date: 20200225
  Receipt Date: 20200225
  Transmission Date: 20200409
  Serious: Yes (Death, Hospitalization)
  Sender: FDA-Public Use
  Company Number: US-MYLANLABS-2020M1020957

PATIENT
  Age: 2 Year
  Sex: Male

DRUGS (6)
  1. DOPAMINE [Suspect]
     Active Substance: DOPAMINE HYDROCHLORIDE
     Indication: CARDIAC ARREST
     Dosage: DRIP
     Route: 065
  2. METHADONE [Suspect]
     Active Substance: METHADONE HYDROCHLORIDE
     Indication: PRODUCT USED FOR UNKNOWN INDICATION
     Route: 048
  3. EPINEPHRINE. [Suspect]
     Active Substance: EPINEPHRINE
     Indication: CARDIAC ARREST
     Dosage: DRIP
     Route: 042
  4. NALOXONE [Suspect]
     Active Substance: NALOXONE
     Indication: TOXICITY TO VARIOUS AGENTS
     Dosage: DRIP
     Route: 042
  5. CHLORPHENIRAMINE                   /00072501/ [Suspect]
     Active Substance: CHLORPHENIRAMINE
     Indication: PRODUCT USED FOR UNKNOWN INDICATION
     Route: 048
  6. DIPHENHYDRAMINE. [Suspect]
     Active Substance: DIPHENHYDRAMINE
     Indication: PRODUCT USED FOR UNKNOWN INDICATION
     Route: 048

REACTIONS (12)
  - Brain herniation [Fatal]
  - Pupil fixed [Not Recovered/Not Resolved]
  - Brain oedema [Fatal]
  - Hypoxic-ischaemic encephalopathy [Fatal]
  - Toxicity to various agents [Fatal]
  - Drug ineffective [Fatal]
  - Unresponsive to stimuli [Not Recovered/Not Resolved]
  - Cardiac arrest [Fatal]
  - Hypotension [Fatal]
  - Lethargy [Not Recovered/Not Resolved]
  - Victim of homicide [Fatal]
  - Respiratory distress [Fatal]
